FAERS Safety Report 24587231 (Version 2)
Quarter: 2024Q4

REPORT INFORMATION
  Report Type: Spontaneous
  Country: IT (occurrence: IT)
  Receive Date: 20241107
  Receipt Date: 20241121
  Transmission Date: 20250115
  Serious: Yes (Hospitalization, Other)
  Sender: AUROBINDO
  Company Number: IT-MINISAL02-1007780

PATIENT
  Age: 53 Year
  Sex: Male

DRUGS (1)
  1. CIPROFLOXACIN [Suspect]
     Active Substance: CIPROFLOXACIN
     Indication: Product used for unknown indication
     Dosage: 500 MILLIGRAM, ONCE A DAY
     Route: 048
     Dates: start: 20241016, end: 20241016

REACTIONS (4)
  - Face oedema [Recovered/Resolved]
  - Pruritus [Recovered/Resolved]
  - Rash [Recovered/Resolved]
  - Throat tightness [Recovered/Resolved]

NARRATIVE: CASE EVENT DATE: 20241016
